FAERS Safety Report 19158188 (Version 2)
Quarter: 2021Q2

REPORT INFORMATION
  Report Type: Report from Study
  Country: US (occurrence: US)
  Receive Date: 20210420
  Receipt Date: 20210430
  Transmission Date: 20210717
  Serious: Yes (Life-Threatening, Other)
  Sender: FDA-Public Use
  Company Number: US-SA-2019SA054515

PATIENT
  Age: 18 Year
  Sex: Male
  Weight: 58.05 kg

DRUGS (8)
  1. CAPLACIZUMAB [Suspect]
     Active Substance: CAPLACIZUMAB
     Indication: THROMBOTIC THROMBOCYTOPENIC PURPURA
     Dosage: 11 MG
     Route: 042
     Dates: start: 20190209, end: 20190223
  2. DILANTIN [Concomitant]
     Active Substance: PHENYTOIN
     Dosage: 200 MG, BID
     Route: 042
  3. TYLENOL [Concomitant]
     Active Substance: ACETAMINOPHEN
     Dosage: UNK
     Route: 065
  4. RITUXAN [Concomitant]
     Active Substance: RITUXIMAB
     Dosage: 325 MG, M2
     Route: 065
  5. CAPLACIZUMAB [Suspect]
     Active Substance: CAPLACIZUMAB
     Dosage: 11 MG
     Route: 058
     Dates: start: 20190209, end: 20190223
  6. SOLU?MEDROL [Concomitant]
     Active Substance: METHYLPREDNISOLONE SODIUM SUCCINATE
     Dosage: 125 MG, Q6H
     Route: 042
  7. SOLU?MEDROL [Concomitant]
     Active Substance: METHYLPREDNISOLONE SODIUM SUCCINATE
     Dosage: 40 MG, Q12H
     Route: 042
  8. KEPPRA [Concomitant]
     Active Substance: LEVETIRACETAM
     Dosage: 1000 MG, BID
     Route: 042

REACTIONS (10)
  - Fluid overload [Unknown]
  - Cardiac arrest [Recovered/Resolved]
  - Thrombophlebitis superficial [Unknown]
  - Cerebral microhaemorrhage [Unknown]
  - Hypoxia [Recovered/Resolved]
  - Thrombosis [Recovered/Resolved]
  - Oxygen saturation decreased [Recovered/Resolved]
  - Urine output increased [Unknown]
  - Pleural effusion [Unknown]
  - Pulmonary haemorrhage [Recovered/Resolved]

NARRATIVE: CASE EVENT DATE: 20190212
